FAERS Safety Report 22615675 (Version 1)
Quarter: 2023Q2

REPORT INFORMATION
  Report Type: Spontaneous
  Country: US (occurrence: US)
  Receive Date: 20230619
  Receipt Date: 20230619
  Transmission Date: 20230721
  Serious: No
  Sender: FDA-Public Use
  Company Number: US-SA-SAC20230616000254

PATIENT

DRUGS (1)
  1. DUPIXENT [Suspect]
     Active Substance: DUPILUMAB
     Indication: Rhinitis
     Dosage: UNK
     Route: 065

REACTIONS (5)
  - Eczema [Unknown]
  - Rhinitis [Unknown]
  - Feeling abnormal [Unknown]
  - Product prescribing issue [Unknown]
  - Product use in unapproved indication [Unknown]
